FAERS Safety Report 7330050-7 (Version None)
Quarter: 2011Q1

REPORT INFORMATION
  Report Type: 
  Country: None (occurrence: None)
  Receive Date: 20110303
  Receipt Date: 20110216
  Transmission Date: 20110831
  Serious: Yes (Death, Other)
  Sender: FDA-Public Use
  Company Number: US-BAYER-201032531NA

PATIENT
  Sex: Female
  Weight: 113.38 kg

DRUGS (5)
  1. YAZ [Suspect]
     Indication: PRODUCT USED FOR UNKNOWN INDICATION
     Route: 048
  2. YASMIN [Suspect]
     Indication: PRODUCT USED FOR UNKNOWN INDICATION
     Route: 048
  3. OCELLA [Suspect]
     Indication: PRODUCT USED FOR UNKNOWN INDICATION
     Route: 048
  4. PAXIL [Concomitant]
  5. LEVOTHYROXINE SODIUM [Concomitant]
     Indication: BASEDOW'S DISEASE

REACTIONS (16)
  - GALLBLADDER DISORDER [None]
  - HEPATIC ADENOMA [None]
  - DIARRHOEA [None]
  - CEREBRAL HAEMORRHAGE [None]
  - THROMBOPHLEBITIS [None]
  - CHOLECYSTITIS ACUTE [None]
  - ABDOMINAL PAIN [None]
  - EMBOLISM ARTERIAL [None]
  - VOMITING [None]
  - CEREBRAL THROMBOSIS [None]
  - ABDOMINAL PAIN UPPER [None]
  - PULMONARY EMBOLISM [None]
  - MYOCARDIAL INFARCTION [None]
  - HYPERTENSION [None]
  - BENIGN HEPATIC NEOPLASM [None]
  - DEEP VEIN THROMBOSIS [None]
